FAERS Safety Report 20036162 (Version 1)
Quarter: 2021Q4

REPORT INFORMATION
  Report Type: Report from Study
  Country: US (occurrence: None)
  Receive Date: 20211105
  Receipt Date: 20211105
  Transmission Date: 20220303
  Serious: Yes (Hospitalization)
  Sender: FDA-Public Use
  Company Number: US-ROCHE-2868864

PATIENT
  Age: 69 Year
  Sex: Male
  Weight: 102.4 kg

DRUGS (4)
  1. ATEZOLIZUMAB [Suspect]
     Active Substance: ATEZOLIZUMAB
     Indication: Transitional cell carcinoma
     Dosage: D1 EVERY THREE WEEKS?LAST DOSE 02/APR/2021
     Route: 041
     Dates: start: 20201002, end: 20210618
  2. CARBOPLATIN [Suspect]
     Active Substance: CARBOPLATIN
     Indication: Transitional cell carcinoma
     Dosage: AUC 4?D1 EVERY THREE WEEKS?LAST DOSE 29/JAN/2021 (363 MG)
     Route: 042
     Dates: start: 20201002, end: 20210618
  3. GEMCITABINE [Suspect]
     Active Substance: GEMCITABINE
     Indication: Transitional cell carcinoma
     Dosage: D1 AND 8 EVERY THREE WEEKS?LAST DOSE 05/FEB/2021 (2280 MG)
     Route: 042
     Dates: start: 20201002, end: 20210618
  4. PANTOPRAZOLE [Concomitant]
     Active Substance: PANTOPRAZOLE
     Route: 048
     Dates: start: 20210708

REACTIONS (1)
  - Duodenal ulcer [Recovered/Resolved]

NARRATIVE: CASE EVENT DATE: 20210706
